FAERS Safety Report 18953319 (Version 3)
Quarter: 2021Q2

REPORT INFORMATION
  Report Type: Spontaneous
  Country: US (occurrence: US)
  Receive Date: 20210301
  Receipt Date: 20210503
  Transmission Date: 20210717
  Serious: Yes (Life-Threatening, Hospitalization, Other)
  Sender: FDA-Public Use
  Company Number: US-MYLANLABS-2021M1011515

PATIENT
  Age: 32 Year
  Sex: Male

DRUGS (3)
  1. VALGANCICLOVIR. [Suspect]
     Active Substance: VALGANCICLOVIR
     Indication: HIV INFECTION
     Route: 065
  2. PREDNISONE. [Suspect]
     Active Substance: PREDNISONE
     Indication: CROHN^S DISEASE
     Dosage: 20 MILLIGRAM
     Route: 065
  3. INFLIXIMAB [Suspect]
     Active Substance: INFLIXIMAB
     Indication: CROHN^S DISEASE
     Dosage: 5 MILLIGRAM/KILOGRAM
     Route: 065

REACTIONS (5)
  - Intentional product misuse [Unknown]
  - Kaposi^s sarcoma [Recovered/Resolved]
  - Cytomegalovirus infection [Unknown]
  - Large intestine infection [Unknown]
  - Human herpesvirus 8 infection [Unknown]
